FAERS Safety Report 21883226 (Version 1)
Quarter: 2023Q1

REPORT INFORMATION
  Report Type: Spontaneous
  Country: PT (occurrence: PT)
  Receive Date: 20230119
  Receipt Date: 20230119
  Transmission Date: 20230418
  Serious: Yes (Other)
  Sender: FDA-Public Use
  Company Number: PT-009507513-2301PRT005529

PATIENT
  Age: 60 Year
  Sex: Female

DRUGS (1)
  1. PEMBROLIZUMAB [Suspect]
     Active Substance: PEMBROLIZUMAB
     Indication: Renal neoplasm
     Dosage: UNK
     Dates: start: 202206

REACTIONS (1)
  - Tumour pseudoprogression [Unknown]

NARRATIVE: CASE EVENT DATE: 20221001
